FAERS Safety Report 5443034-0 (Version None)
Quarter: 2007Q3

REPORT INFORMATION
  Report Type: 
  Country: None (occurrence: None)
  Receive Date: 20070822
  Receipt Date: 20070807
  Transmission Date: 20080115
  Serious: Yes (Hospitalization)
  Sender: FDA-Public Use
  Company Number: WSDF_00665

PATIENT
  Age: 6 Month
  Sex: Female
  Weight: 10 kg

DRUGS (2)
  1. WINRHO SDF [Suspect]
     Indication: AUTOIMMUNE THROMBOCYTOPENIA
     Dosage: 50 UG/KG ONCE IV
     Route: 042
     Dates: start: 20070611, end: 20070611
  2. WINRHO SDF [Suspect]
     Indication: DENGUE FEVER
     Dosage: 50 UG/KG ONCE IV
     Route: 042
     Dates: start: 20070611, end: 20070611

REACTIONS (3)
  - COOMBS TEST POSITIVE [None]
  - HAEMOGLOBIN DECREASED [None]
  - INTRAVASCULAR HAEMOLYSIS [None]
